FAERS Safety Report 25902737 (Version 2)
Quarter: 2025Q4

REPORT INFORMATION
  Report Type: Spontaneous
  Country: EU (occurrence: EU)
  Receive Date: 20251009
  Receipt Date: 20251029
  Transmission Date: 20260118
  Serious: Yes (Hospitalization, Other)
  Sender: MYLAN
  Company Number: EU-NEURAXPHARM PHARMACEUTICALS, S.L-DE-NEU-25-113739

PATIENT
  Age: 36 Year
  Sex: Male

DRUGS (32)
  1. LEVETIRACETAM [Suspect]
     Active Substance: LEVETIRACETAM
     Indication: Seizure
     Dosage: 2000 MILLIGRAM (ONCE DURING FIRST HOSPITALIZATION, 1000 MG DAY 6)
  2. LEVETIRACETAM [Suspect]
     Active Substance: LEVETIRACETAM
     Indication: Seizure prophylaxis
     Dosage: 2000 MILLIGRAM (ONCE DURING FIRST HOSPITALIZATION, 1000 MG DAY 6)
     Route: 042
  3. LEVETIRACETAM [Suspect]
     Active Substance: LEVETIRACETAM
     Indication: Drug therapy
     Dosage: 2000 MILLIGRAM (ONCE DURING FIRST HOSPITALIZATION, 1000 MG DAY 6)
     Route: 042
  4. LEVETIRACETAM [Suspect]
     Active Substance: LEVETIRACETAM
     Dosage: 2000 MILLIGRAM (ONCE DURING FIRST HOSPITALIZATION, 1000 MG DAY 6)
  5. LEVETIRACETAM [Suspect]
     Active Substance: LEVETIRACETAM
     Dosage: 1000 MILLIGRAM, BID (1-0-1 DURING FIRST HOSPITALIZATION AND 1500 MG ON DAY 6)
  6. LEVETIRACETAM [Suspect]
     Active Substance: LEVETIRACETAM
     Dosage: 1000 MILLIGRAM, BID (1-0-1 DURING FIRST HOSPITALIZATION AND 1500 MG ON DAY 6)
     Route: 042
  7. LEVETIRACETAM [Suspect]
     Active Substance: LEVETIRACETAM
     Dosage: 1000 MILLIGRAM, BID (1-0-1 DURING FIRST HOSPITALIZATION AND 1500 MG ON DAY 6)
  8. LEVETIRACETAM [Suspect]
     Active Substance: LEVETIRACETAM
     Dosage: 1000 MILLIGRAM, BID (1-0-1 DURING FIRST HOSPITALIZATION AND 1500 MG ON DAY 6)
     Route: 042
  9. LEVETIRACETAM [Suspect]
     Active Substance: LEVETIRACETAM
     Dosage: 1000 MILLIGRAM
     Route: 042
  10. LEVETIRACETAM [Suspect]
     Active Substance: LEVETIRACETAM
     Dosage: 1000 MILLIGRAM
     Route: 042
  11. LEVETIRACETAM [Suspect]
     Active Substance: LEVETIRACETAM
     Dosage: 1000 MILLIGRAM
  12. LEVETIRACETAM [Suspect]
     Active Substance: LEVETIRACETAM
     Dosage: 1000 MILLIGRAM
  13. LEVETIRACETAM [Suspect]
     Active Substance: LEVETIRACETAM
     Indication: Seizure
     Dosage: 1500 MILLIGRAM, BID, 1-0-1, INCREASED
  14. LEVETIRACETAM [Suspect]
     Active Substance: LEVETIRACETAM
     Indication: Seizure prophylaxis
     Dosage: 1500 MILLIGRAM, BID, 1-0-1, INCREASED
     Route: 065
  15. LEVETIRACETAM [Suspect]
     Active Substance: LEVETIRACETAM
     Indication: Drug therapy
     Dosage: 1500 MILLIGRAM, BID, 1-0-1, INCREASED
     Route: 065
  16. LEVETIRACETAM [Suspect]
     Active Substance: LEVETIRACETAM
     Dosage: 1500 MILLIGRAM, BID, 1-0-1, INCREASED
  17. LAMOTRIGINE [Concomitant]
     Active Substance: LAMOTRIGINE
     Indication: Seizure
     Dosage: UNK
  18. LAMOTRIGINE [Concomitant]
     Active Substance: LAMOTRIGINE
     Indication: Drug therapy
     Dosage: UNK
     Route: 065
  19. LAMOTRIGINE [Concomitant]
     Active Substance: LAMOTRIGINE
     Dosage: UNK
     Route: 065
  20. LAMOTRIGINE [Concomitant]
     Active Substance: LAMOTRIGINE
     Dosage: UNK
  21. LORAZEPAM [Concomitant]
     Active Substance: LORAZEPAM
     Indication: Epilepsy
     Dosage: 0.5 MILLIGRAM
  22. LORAZEPAM [Concomitant]
     Active Substance: LORAZEPAM
     Dosage: 0.5 MILLIGRAM
     Route: 065
  23. LORAZEPAM [Concomitant]
     Active Substance: LORAZEPAM
     Dosage: 0.5 MILLIGRAM
     Route: 065
  24. LORAZEPAM [Concomitant]
     Active Substance: LORAZEPAM
     Dosage: 0.5 MILLIGRAM
  25. POTASSIUM SODIUM HYDROGEN CITRATE [Concomitant]
     Active Substance: POTASSIUM SODIUM HYDROGEN CITRATE
     Indication: Prophylaxis
     Dosage: UNK
  26. POTASSIUM SODIUM HYDROGEN CITRATE [Concomitant]
     Active Substance: POTASSIUM SODIUM HYDROGEN CITRATE
     Dosage: UNK
     Route: 065
  27. POTASSIUM SODIUM HYDROGEN CITRATE [Concomitant]
     Active Substance: POTASSIUM SODIUM HYDROGEN CITRATE
     Dosage: UNK
     Route: 065
  28. POTASSIUM SODIUM HYDROGEN CITRATE [Concomitant]
     Active Substance: POTASSIUM SODIUM HYDROGEN CITRATE
     Dosage: UNK
  29. LACOSAMIDE [Concomitant]
     Active Substance: LACOSAMIDE
     Indication: Seizure
     Dosage: UNK 1-0-1 (BID)
  30. LACOSAMIDE [Concomitant]
     Active Substance: LACOSAMIDE
     Dosage: UNK 1-0-1 (BID)
     Route: 065
  31. LACOSAMIDE [Concomitant]
     Active Substance: LACOSAMIDE
     Dosage: UNK 1-0-1 (BID)
     Route: 065
  32. LACOSAMIDE [Concomitant]
     Active Substance: LACOSAMIDE
     Dosage: UNK 1-0-1 (BID)

REACTIONS (3)
  - Rhabdomyolysis [Recovering/Resolving]
  - Blood creatine phosphokinase increased [Recovering/Resolving]
  - Myalgia [Unknown]
